FAERS Safety Report 5685200-5 (Version None)
Quarter: 2008Q1

REPORT INFORMATION
  Report Type: 
  Country: None (occurrence: None)
  Receive Date: 20080328
  Receipt Date: 20080317
  Transmission Date: 20080703
  Serious: Yes (Life-Threatening, Hospitalization, Other)
  Sender: FDA-Public Use
  Company Number: CA-PFIZER INC-2008012877

PATIENT
  Age: 40 Year
  Sex: Male

DRUGS (2)
  1. VIAGRA [Suspect]
  2. CHAMPIX [Suspect]

REACTIONS (3)
  - ARTERIAL OCCLUSIVE DISEASE [None]
  - COMA [None]
  - VENTRICULAR TACHYCARDIA [None]
